FAERS Safety Report 15589657 (Version 1)
Quarter: 2018Q4

REPORT INFORMATION
  Report Type: Spontaneous
  Country: IT (occurrence: IT)
  Receive Date: 20181106
  Receipt Date: 20181106
  Transmission Date: 20190205
  Serious: Yes (Other)
  Sender: FDA-Public Use
  Company Number: IT-ACCORD-091323

PATIENT
  Age: 85 Year
  Sex: Male

DRUGS (7)
  1. LANTUS [Concomitant]
     Active Substance: INSULIN GLARGINE
     Route: 058
  2. HUMALOG [Concomitant]
     Active Substance: INSULIN LISPRO
     Route: 058
  3. BISOPROLOL [Concomitant]
     Active Substance: BISOPROLOL
  4. ALLOPURINOL. [Suspect]
     Active Substance: ALLOPURINOL
     Indication: HYPERURICAEMIA
     Route: 048
     Dates: start: 20171123, end: 20171202
  5. LASIX [Concomitant]
     Active Substance: FUROSEMIDE
  6. LANSOX [Concomitant]
     Active Substance: LANSOPRAZOLE
  7. CLEXANE T [Concomitant]
     Active Substance: ENOXAPARIN SODIUM
     Route: 058

REACTIONS (2)
  - Dermatitis bullous [Unknown]
  - Drug eruption [Recovered/Resolved]

NARRATIVE: CASE EVENT DATE: 20171128
